FAERS Safety Report 7812607-X (Version None)
Quarter: 2011Q4

REPORT INFORMATION
  Report Type: 
  Country: None (occurrence: None)
  Receive Date: 20111013
  Receipt Date: 20110822
  Transmission Date: 20120403
  Serious: No
  Sender: FDA-Public Use
  Company Number: US-NOVEN-11US003030

PATIENT
  Sex: Female

DRUGS (1)
  1. FENTANYL [Suspect]
     Indication: PAIN
     Dosage: 25 UG/HR, EVERY 72 HRS
     Route: 062

REACTIONS (8)
  - WHEEZING [None]
  - LACRIMATION INCREASED [None]
  - PALPITATIONS [None]
  - APPLICATION SITE PAIN [None]
  - URTICARIA [None]
  - TREMOR [None]
  - EYE SWELLING [None]
  - SWELLING FACE [None]
